FAERS Safety Report 4364326-2 (Version None)
Quarter: 2004Q2

REPORT INFORMATION
  Report Type: 
  Country: None (occurrence: None)
  Receive Date: 20040525
  Receipt Date: 20030812
  Transmission Date: 20050107
  Serious: No
  Sender: FDA-Public Use
  Company Number: US-BRISTOL-MYERS SQUIBB COMPANY-12353124

PATIENT
  Age: 60 Year
  Sex: Female
  Weight: 59 kg

DRUGS (4)
  1. CYTOXAN [Suspect]
     Indication: SCLERODERMA
     Route: 048
     Dates: start: 20030701
  2. PRILOSEC [Concomitant]
  3. FOSAMAX [Concomitant]
  4. MULTIVITAMIN [Concomitant]

REACTIONS (1)
  - WHITE BLOOD CELL COUNT INCREASED [None]
